FAERS Safety Report 5753510-9 (Version None)
Quarter: 2008Q2

REPORT INFORMATION
  Report Type: 
  Country: None (occurrence: None)
  Receive Date: 20080530
  Receipt Date: 20080521
  Transmission Date: 20081010
  Serious: Yes (Other)
  Sender: FDA-Public Use
  Company Number: PHHY2008JP01451

PATIENT
  Sex: Female

DRUGS (2)
  1. AREDIA [Suspect]
     Indication: METASTASES TO BONE
     Dosage: UNK
     Route: 042
     Dates: start: 20040101, end: 20060101
  2. TAMOXIFEN CITRATE [Concomitant]
     Indication: METASTASES TO BONE
     Dates: start: 20040101

REACTIONS (8)
  - BONE DISORDER [None]
  - GINGIVAL SWELLING [None]
  - GINGIVITIS [None]
  - IMPAIRED HEALING [None]
  - OSTEOMYELITIS [None]
  - PERIODONTITIS [None]
  - THERAPEUTIC PROCEDURE [None]
  - TOOTH EXTRACTION [None]
